FAERS Safety Report 8587733-0 (Version None)
Quarter: 2012Q3

REPORT INFORMATION
  Report Type: 
  Country: None (occurrence: None)
  Receive Date: 20120813
  Receipt Date: 20120808
  Transmission Date: 20120928
  Serious: Yes (Hospitalization)
  Sender: FDA-Public Use
  Company Number: PR-AMGEN-PRISP2012050036

PATIENT
  Age: 35 Year
  Sex: Female

DRUGS (3)
  1. PREMARIN [Concomitant]
  2. PROLIA [Suspect]
     Indication: OSTEOPOROSIS POSTMENOPAUSAL
     Dosage: 60 MG, Q6MO
     Dates: start: 20110901
  3. PROVERA [Concomitant]

REACTIONS (4)
  - INFLUENZA [None]
  - VERTIGO [None]
  - CYSTITIS [None]
  - EAR INFECTION [None]
